FAERS Safety Report 6958774-1 (Version None)
Quarter: 2010Q3

REPORT INFORMATION
  Report Type: 
  Country: None (occurrence: None)
  Receive Date: 20100831
  Receipt Date: 20100808
  Transmission Date: 20110219
  Serious: Yes (Other)
  Sender: FDA-Public Use
  Company Number: PHHY2010US50844

PATIENT
  Sex: Female

DRUGS (1)
  1. LOPRESSOR [Suspect]

REACTIONS (7)
  - ALOPECIA [None]
  - ASTHENIA [None]
  - BLOOD PRESSURE FLUCTUATION [None]
  - FATIGUE [None]
  - HANGOVER [None]
  - LOSS OF LIBIDO [None]
  - MIGRAINE [None]
